FAERS Safety Report 9551373 (Version 1)
Quarter: 2013Q3

REPORT INFORMATION
  Report Type: Spontaneous
  Country: US (occurrence: None)
  Receive Date: 20130724
  Receipt Date: 20130724
  Transmission Date: 20140515
  Serious: Yes (Other)
  Sender: FDA-Public Use
  Company Number: PHEH2012US011907

PATIENT
  Age: 59 Year
  Sex: Female
  Weight: 78 kg

DRUGS (3)
  1. GLEEVEC [Suspect]
     Indication: GASTROINTESTINAL STROMAL TUMOUR
     Route: 048
     Dates: start: 201205, end: 20130306
  2. LUMIGAN (BIMATOPROST) SOLUTION, 0.01% [Concomitant]
  3. COSOPT (DORZOLAMIDE HYDROCHLORIDE TIMOLOL MALEATE) SOLUTION, 2-0.5% [Concomitant]

REACTIONS (7)
  - Gastrointestinal stromal tumour [None]
  - Malignant neoplasm progression [None]
  - Weight increased [None]
  - Diarrhoea [None]
  - Joint swelling [None]
  - Nausea [None]
  - Vomiting [None]
